FAERS Safety Report 5673788-X (Version None)
Quarter: 2008Q1

REPORT INFORMATION
  Report Type: 
  Country: None (occurrence: None)
  Receive Date: 20080319
  Receipt Date: 20080307
  Transmission Date: 20080703
  Serious: Yes (Other)
  Sender: FDA-Public Use
  Company Number: US-PFIZER INC-2008021943

PATIENT
  Sex: Female
  Weight: 113.63 kg

DRUGS (8)
  1. LYRICA [Suspect]
     Indication: FIBROMYALGIA
     Dates: start: 20071201, end: 20080304
  2. LEVOXINE [Concomitant]
  3. PAXIL [Concomitant]
  4. BUSPIRONE HCL [Concomitant]
  5. SEROQUEL [Concomitant]
  6. BACLOFEN [Concomitant]
  7. ACETYLSALICYLIC ACID [Concomitant]
  8. VITAMINS [Concomitant]

REACTIONS (9)
  - ANGER [None]
  - DYSPNOEA [None]
  - DYSSTASIA [None]
  - FEELING ABNORMAL [None]
  - GINGIVAL SWELLING [None]
  - HYPERSENSITIVITY [None]
  - LIP SWELLING [None]
  - SALIVARY HYPERSECRETION [None]
  - SWOLLEN TONGUE [None]
